FAERS Safety Report 4745146-3 (Version None)
Quarter: 2005Q3

REPORT INFORMATION
  Report Type: 
  Country: None (occurrence: None)
  Receive Date: 20050815
  Receipt Date: 20050808
  Transmission Date: 20060218
  Serious: Yes (Hospitalization, Other)
  Sender: FDA-Public Use
  Company Number: GB-BRISTOL-MYERS SQUIBB COMPANY-13072046

PATIENT
  Sex: Female

DRUGS (2)
  1. SUSTIVA [Suspect]
     Indication: HIV INFECTION
     Route: 048
     Dates: start: 20050701, end: 20050701
  2. COMBIVIR [Concomitant]
     Route: 048
     Dates: end: 20050701

REACTIONS (6)
  - DEHYDRATION [None]
  - JAUNDICE [None]
  - LIVER FUNCTION TEST ABNORMAL [None]
  - RASH GENERALISED [None]
  - URINE OUTPUT DECREASED [None]
  - VOMITING [None]
